FAERS Safety Report 8492929-2 (Version None)
Quarter: 2012Q3

REPORT INFORMATION
  Report Type: 
  Country: None (occurrence: None)
  Receive Date: 20120706
  Receipt Date: 20120628
  Transmission Date: 20120928
  Serious: Yes (Hospitalization)
  Sender: FDA-Public Use
  Company Number: US-GLAXOSMITHKLINE-A0982461A

PATIENT
  Sex: Male

DRUGS (1)
  1. HYCAMTIN [Suspect]
     Indication: PRODUCT USED FOR UNKNOWN INDICATION
     Dosage: 1MG UNKNOWN

REACTIONS (5)
  - HAEMORRHAGE [None]
  - FATIGUE [None]
  - BLOOD GLUCOSE INCREASED [None]
  - PNEUMONIA [None]
  - HYPOTENSION [None]
